FAERS Safety Report 12223436 (Version 4)
Quarter: 2016Q2

REPORT INFORMATION
  Report Type: Spontaneous
  Country: US (occurrence: US)
  Receive Date: 20160330
  Receipt Date: 20160623
  Transmission Date: 20160815
  Serious: Yes (Other)
  Sender: FDA-Public Use
  Company Number: US-PFIZER INC-2016172143

PATIENT
  Age: 56 Year
  Sex: Female

DRUGS (8)
  1. LYRICA [Suspect]
     Active Substance: PREGABALIN
     Indication: FIBROMYALGIA
     Dosage: 100 MG, 1X/DAY AT BEDTIME
     Route: 048
     Dates: start: 20160205
  2. VITAMIN D3 [Concomitant]
     Active Substance: CHOLECALCIFEROL
     Dosage: 1000 IU, DAILY
     Route: 048
     Dates: start: 20140811
  3. NORCO [Concomitant]
     Active Substance: ACETAMINOPHEN\HYDROCODONE BITARTRATE
     Dosage: (HYDROCODONE BITARTRATE: 10 MG, PARACETAMOL: 325 MG), 2 TABLET Q 4 H PM PRN
     Route: 048
     Dates: start: 20160209
  4. IBUPROFEN. [Concomitant]
     Active Substance: IBUPROFEN
     Dosage: 100 MG, AS NEEDED (1 TABLET BID-TID PM PRN TAKE WITH MEAL)
     Route: 048
     Dates: start: 20140811
  5. MAXZIDE [Concomitant]
     Active Substance: HYDROCHLOROTHIAZIDE\TRIAMTERENE
     Dosage: 1 DF, 1X/DAY (HYDROCHLOROTHIAZIDE:75 MG, TRIAMTERENE: 50MG)
     Route: 048
     Dates: start: 20140811
  6. LISINOPRIL. [Concomitant]
     Active Substance: LISINOPRIL
     Dosage: 40 MG, 1X/DAY
     Route: 048
     Dates: start: 20140811, end: 20140811
  7. FOSAMAX [Concomitant]
     Active Substance: ALENDRONATE SODIUM
     Dosage: 70 MG, UNK (1 TABLET WITH WATER ONLY. 30 MIN BEFORE OTHER FOOD OR DRINK)
     Route: 048
     Dates: start: 20160209
  8. ERGOCALCIFEROL. [Concomitant]
     Active Substance: ERGOCALCIFEROL
     Dosage: 1 CAPSULE TWICE WEEKLY
     Route: 048
     Dates: start: 20140813

REACTIONS (3)
  - Back pain [Unknown]
  - Condition aggravated [Unknown]
  - Lumbar vertebral fracture [Unknown]
